FAERS Safety Report 7096652-0 (Version None)
Quarter: 2010Q4

REPORT INFORMATION
  Report Type: 
  Country: None (occurrence: None)
  Receive Date: 20101110
  Receipt Date: 20101110
  Transmission Date: 20110411
  Serious: Yes (Hospitalization, Disabling)
  Sender: FDA-Public Use
  Company Number: None

PATIENT
  Age: 67 Year
  Sex: Female
  Weight: 58.0604 kg

DRUGS (2)
  1. FOSAMAX [Suspect]
     Indication: OSTEOPENIA
     Dosage: 1 TABLET 1 PER WEEK PO
     Route: 048
     Dates: start: 20020601, end: 20100801
  2. ALENDRONATE SODIUM [Suspect]

REACTIONS (2)
  - BURSITIS [None]
  - STRESS FRACTURE [None]
